FAERS Safety Report 7472979-5 (Version None)
Quarter: 2011Q2

REPORT INFORMATION
  Report Type: 
  Country: None (occurrence: None)
  Receive Date: 20110511
  Receipt Date: 20110428
  Transmission Date: 20111010
  Serious: Yes (Other)
  Sender: FDA-Public Use
  Company Number: PHHY2011BR36053

PATIENT
  Sex: Female

DRUGS (1)
  1. ENABLEX [Suspect]
     Indication: HYPERTONIC BLADDER
     Dosage: 7.5 MG, UNK
     Route: 048

REACTIONS (4)
  - URINARY TRACT INFECTION [None]
  - PAIN [None]
  - WEIGHT DECREASED [None]
  - INSOMNIA [None]
